FAERS Safety Report 16342637 (Version 1)
Quarter: 2019Q2

REPORT INFORMATION
  Report Type: Spontaneous
  Country: US (occurrence: US)
  Receive Date: 20190522
  Receipt Date: 20190522
  Transmission Date: 20190711
  Serious: No
  Sender: FDA-Public Use
  Company Number: US-TEVA-2019-US-1044982

PATIENT
  Sex: Male

DRUGS (2)
  1. WARFARIN [Suspect]
     Active Substance: WARFARIN
     Indication: CARDIAC DISORDER
     Dosage: 2.5MG FOR FOUR DAYS, 5MG FOR 3 DAYS, BY MOUTH
     Route: 065
     Dates: start: 2015
  2. CARVEDILOL. [Concomitant]
     Active Substance: CARVEDILOL
     Indication: CARDIAC DISORDER
     Dosage: 12.5 MILLIGRAM DAILY;
     Dates: start: 201809

REACTIONS (2)
  - Burning sensation [Unknown]
  - Wrong product administered [Not Recovered/Not Resolved]

NARRATIVE: CASE EVENT DATE: 201902
